FAERS Safety Report 10703944 (Version 9)
Quarter: 2015Q2

REPORT INFORMATION
  Report Type: Spontaneous
  Country: GB (occurrence: GB)
  Receive Date: 20150112
  Receipt Date: 20150521
  Transmission Date: 20150821
  Serious: Yes (Hospitalization, Other)
  Sender: FDA-Public Use
  Company Number: GB-BEH-2013039150

PATIENT
  Age: 64 Year
  Sex: Male
  Weight: 107 kg

DRUGS (28)
  1. PRIVIGEN [Suspect]
     Active Substance: HUMAN IMMUNOGLOBULIN G
     Dosage: 3 X 10G
     Route: 042
     Dates: start: 20121213, end: 20121214
  2. PROPANTHELINE BROMIDE 15 MG [Concomitant]
     Dosage: START DATE ??-SEP-2012
     Route: 048
  3. NASONEX [Concomitant]
     Active Substance: MOMETASONE FUROATE
     Dosage: 25 (ILLEGIBLE) BN
     Route: 045
  4. PRIVIGEN [Suspect]
     Active Substance: HUMAN IMMUNOGLOBULIN G
     Dosage: INITIAL TREATMENT AT SOUTHAMPTON NEUROLOGY ??-SEP-2012 DOSE NOT KNOWN
  5. PRIVIGEN [Suspect]
     Active Substance: HUMAN IMMUNOGLOBULIN G
     Route: 042
     Dates: start: 20121213, end: 20121214
  6. PRIVIGEN [Suspect]
     Active Substance: HUMAN IMMUNOGLOBULIN G
     Dosage: 5 X 20 G
     Route: 042
     Dates: start: 20121213, end: 20121214
  7. PRIVIGEN [Suspect]
     Active Substance: HUMAN IMMUNOGLOBULIN G
     Indication: MYASTHENIA GRAVIS
     Dosage: 40 G/400 ML OVER 3 1/2 HOURS
     Route: 042
     Dates: start: 20140626, end: 20140626
  8. CALCICHEW D3 40 FORTE [Concomitant]
     Indication: OSTEOARTHRITIS
     Dosage: I
     Route: 048
  9. ASPIRIN DISP. 75 MG [Concomitant]
     Route: 048
  10. CLARITHROMYCIN. [Concomitant]
     Active Substance: CLARITHROMYCIN
     Indication: BRONCHIECTASIS
     Route: 048
  11. PRIVIGEN [Suspect]
     Active Substance: HUMAN IMMUNOGLOBULIN G
     Indication: DENTAL OPERATION
     Dosage: PREVIOUS DOSE AT ST. MARY^S HOSPITAL
     Route: 042
     Dates: start: 20121213, end: 20121213
  12. PRIVIGEN [Suspect]
     Active Substance: HUMAN IMMUNOGLOBULIN G
     Dosage: PREVIOUS DOSE AT ST. MARY^S HOSPITAL
     Route: 042
     Dates: start: 20121214, end: 20121214
  13. AMLODIPINE [Concomitant]
     Active Substance: AMLODIPINE BESYLATE
     Indication: HYPERTENSION
     Route: 048
  14. PROLIA [Concomitant]
     Active Substance: DENOSUMAB
  15. ANTIBIOTICS [Concomitant]
     Active Substance: UNSPECIFIED INGREDIENT
  16. CALCICHEW D3 40 FORTE [Concomitant]
     Indication: OSTEOPENIA
     Dosage: I
     Route: 048
  17. EYE DROPS [Concomitant]
     Active Substance: TETRAHYDROZOLINE HYDROCHLORIDE
     Indication: CHRONIC OBSTRUCTIVE PULMONARY DISEASE
     Dosage: 0.5 % PM
     Route: 047
  18. SYMBICORT TURBO 100/6 [Concomitant]
     Indication: ALPHA-1 ANTI-TRYPSIN DEFICIENCY
     Dosage: 2 PUFFS OD?
     Route: 055
  19. SYMBICORT TURBO 100/6 [Concomitant]
     Indication: BRONCHIECTASIS
     Dosage: 2 PUFFS OD?
     Route: 055
  20. SYMBICORT TURBO 100/6 [Concomitant]
     Indication: SELECTIVE IGA IMMUNODEFICIENCY
     Dosage: 2 PUFFS OD?
     Route: 055
  21. LANSOPRAZOLE. [Concomitant]
     Active Substance: LANSOPRAZOLE
     Route: 048
  22. PRIVIGEN [Suspect]
     Active Substance: HUMAN IMMUNOGLOBULIN G
     Route: 042
     Dates: start: 20121213, end: 20121214
  23. PRIVIGEN [Suspect]
     Active Substance: HUMAN IMMUNOGLOBULIN G
     Indication: IMMUNODEFICIENCY
     Dosage: GRADUALLY INCREASING RATE 120G/1200 ML OVER APPROX. 13 HOURS; TOTAL DOSE: 160 G
     Route: 042
     Dates: start: 20140627, end: 20140627
  24. FERROUS FUMARATE [Concomitant]
     Active Substance: FERROUS FUMARATE
  25. LEVETIRACETAM. [Concomitant]
     Active Substance: LEVETIRACETAM
     Indication: EPILEPSY
  26. TYROTHRICIN [Concomitant]
     Active Substance: TYROTHRICIN
  27. KEPPRA [Concomitant]
     Active Substance: LEVETIRACETAM
     Indication: EPILEPSY
     Route: 048
  28. PYRIDOSTIGMINE 60 MG [Concomitant]
     Indication: MYASTHENIA GRAVIS
     Dosage: 240 MG; 9DS OR 90 MG TDS; START DATE ??-SEP-2012
     Route: 048

REACTIONS (22)
  - Angiodysplasia [Unknown]
  - Deep vein thrombosis [Recovered/Resolved with Sequelae]
  - Product use issue [Unknown]
  - Musculoskeletal stiffness [Not Recovered/Not Resolved]
  - Incorrect drug administration duration [Unknown]
  - Myasthenia gravis [Unknown]
  - Diabetes mellitus [Unknown]
  - Asthenia [Not Recovered/Not Resolved]
  - Blood viscosity increased [Unknown]
  - Renal pain [Unknown]
  - Renal pain [Not Recovered/Not Resolved]
  - Incorrect drug administration rate [Unknown]
  - Administration related reaction [Unknown]
  - Fatigue [Not Recovered/Not Resolved]
  - Deep vein thrombosis [Unknown]
  - Blood viscosity increased [Unknown]
  - Headache [Not Recovered/Not Resolved]
  - Pain in extremity [Recovered/Resolved]
  - Pulmonary embolism [Recovered/Resolved with Sequelae]
  - Back pain [Not Recovered/Not Resolved]
  - Dyspnoea [Recovered/Resolved]
  - Anaemia [Unknown]

NARRATIVE: CASE EVENT DATE: 20140626
